FAERS Safety Report 7528340-8 (Version None)
Quarter: 2011Q2

REPORT INFORMATION
  Report Type: 
  Country: None (occurrence: None)
  Receive Date: 20110607
  Receipt Date: 20101013
  Transmission Date: 20111010
  Serious: No
  Sender: FDA-Public Use
  Company Number: US-ASTRAZENECA-2010SE49924

PATIENT
  Age: 68 Year
  Sex: Female

DRUGS (7)
  1. BUMETANIDE [Concomitant]
     Dosage: UNKNOWN
  2. SOMETIMES ANXIETY MEDS [Concomitant]
     Dosage: UNKNOWN
  3. THYROID THERAPY [Concomitant]
     Dosage: UNKNOWN
  4. POTASSIUM CHLORIDE [Concomitant]
     Dosage: UNKNOWN
  5. PRILOSEC OTC [Suspect]
     Indication: GASTROOESOPHAGEAL REFLUX DISEASE
     Route: 048
     Dates: start: 20101009
  6. LISINOPRIL [Concomitant]
     Dosage: UNKNOWN
  7. DRUG USED IN DIABETES [Concomitant]
     Dosage: UNKNOWN

REACTIONS (1)
  - ERUCTATION [None]
